FAERS Safety Report 6370580-8 (Version None)
Quarter: 2009Q3

REPORT INFORMATION
  Report Type: 
  Country: None (occurrence: None)
  Receive Date: 20090923
  Receipt Date: 20090914
  Transmission Date: 20100115
  Serious: Yes (Disabling)
  Sender: FDA-Public Use
  Company Number: B0592822A

PATIENT
  Sex: Male
  Weight: 89 kg

DRUGS (5)
  1. ARIXTRA [Suspect]
     Indication: THROMBOSIS PROPHYLAXIS
     Dosage: 10MG PER DAY
     Route: 058
     Dates: start: 20090801, end: 20090906
  2. AVODART [Concomitant]
     Indication: PROSTATIC ADENOMA
     Route: 065
  3. COKENZEN [Concomitant]
     Route: 065
  4. CARDENSIEL [Concomitant]
     Route: 065
  5. TAMSULOSIN HYDROCHLORIDE [Concomitant]
     Indication: PROSTATIC ADENOMA
     Route: 065

REACTIONS (7)
  - HAEMATOMA [None]
  - INCORRECT DOSE ADMINISTERED [None]
  - MOBILITY DECREASED [None]
  - MUSCULOSKELETAL STIFFNESS [None]
  - OEDEMA PERIPHERAL [None]
  - OFF LABEL USE [None]
  - OVERDOSE [None]
